FAERS Safety Report 15858976 (Version 2)
Quarter: 2019Q1

REPORT INFORMATION
  Report Type: Report from Study
  Country: US (occurrence: US)
  Receive Date: 20190123
  Receipt Date: 20190128
  Transmission Date: 20190417
  Serious: Yes (Hospitalization, Other)
  Sender: FDA-Public Use
  Company Number: US-BRISTOL-MYERS SQUIBB COMPANY-BMS-2019-004544

PATIENT
  Age: 66 Year
  Sex: Male

DRUGS (1)
  1. NIVOLUMAB [Suspect]
     Active Substance: NIVOLUMAB
     Indication: BLADDER CANCER
     Dosage: UNK
     Route: 065
     Dates: start: 20160613, end: 20181226

REACTIONS (5)
  - Jaundice [Unknown]
  - Vomiting [Unknown]
  - Abdominal pain [Unknown]
  - Cholelithiasis obstructive [Unknown]
  - Cholecystitis [Unknown]

NARRATIVE: CASE EVENT DATE: 20190109
